FAERS Safety Report 21620758 (Version 1)
Quarter: 2022Q4

REPORT INFORMATION
  Report Type: Spontaneous
  Country: US (occurrence: US)
  Receive Date: 20221121
  Receipt Date: 20221121
  Transmission Date: 20230113
  Serious: No
  Sender: FDA-Public Use
  Company Number: US-drreddys-SPO/USA/22/0156897

PATIENT
  Age: 41 Year
  Sex: Female

DRUGS (1)
  1. ZENATANE [Suspect]
     Active Substance: ISOTRETINOIN
     Indication: Acne
     Dosage: RMA ISSUE DATE: 23 JUNE 2022 12:41:28 PM, 27 JULY 2022 09:51:42 AM; 29 AUGUST 2022 11:36:03 AM; 04 O

REACTIONS (1)
  - Blood creatinine increased [Unknown]
